FAERS Safety Report 10243341 (Version 1)
Quarter: 2014Q2

REPORT INFORMATION
  Report Type: Spontaneous
  Country: US (occurrence: None)
  Receive Date: 20140616
  Receipt Date: 20140616
  Transmission Date: 20141212
  Serious: Yes (Other)
  Sender: FDA-Public Use
  Company Number: US-H14001-14-00039

PATIENT
  Age: 84 Year
  Sex: Male

DRUGS (5)
  1. LISINOPRIL (LISINOPRIL) [Suspect]
     Indication: HYPERTENSION
     Route: 048
  2. POLYETHYLENE GLYCOL [Suspect]
     Indication: BOWEL PREPARATION
  3. AMLODIPINE (AMLODIPINE) (UNKNOWN) (AMLODIPINE) [Concomitant]
  4. SYNTHROID (LEVOTHYROXINE SODIUM) (UNKNOWN) (LEVOTHYROXINE SODIUM) [Concomitant]
  5. FLOMAX (MORNIFLUMATE) (UNKNOWN) (MORNIFLUMATE) [Concomitant]

REACTIONS (5)
  - Vomiting [None]
  - Nausea [None]
  - Abdominal pain lower [None]
  - Convulsion [None]
  - Inappropriate antidiuretic hormone secretion [None]
